FAERS Safety Report 18438250 (Version 4)
Quarter: 2021Q1

REPORT INFORMATION
  Report Type: Report from Study
  Country: GB (occurrence: GB)
  Receive Date: 20201028
  Receipt Date: 20210211
  Transmission Date: 20210419
  Serious: Yes (Life-Threatening, Hospitalization, Other)
  Sender: FDA-Public Use
  Company Number: GB-MYLANLABS-2020M1090381

PATIENT
  Age: 23 Year
  Sex: Female
  Weight: 58 kg

DRUGS (7)
  1. IMATINIB. [Suspect]
     Active Substance: IMATINIB MESYLATE
     Indication: CHRONIC MYELOID LEUKAEMIA
     Dosage: 400 MILLIGRAM, QD
     Route: 048
     Dates: start: 20170918, end: 20171224
  2. METRONIDAZOLE. [Suspect]
     Active Substance: METRONIDAZOLE
     Indication: POSTOPERATIVE WOUND INFECTION
     Dosage: 400 MILLIGRAM, 14 DAYS
     Route: 065
     Dates: start: 20171208, end: 20171215
  3. IMATINIB. [Suspect]
     Active Substance: IMATINIB MESYLATE
     Indication: THROMBOCYTOSIS
     Dosage: UNK
  4. FERROUS SULFATE. [Suspect]
     Active Substance: FERROUS SULFATE
     Indication: IRON DEFICIENCY ANAEMIA
     Dosage: UNK
     Route: 065
     Dates: start: 20170823
  5. DASATINIB. [Suspect]
     Active Substance: DASATINIB
     Indication: PRODUCT USED FOR UNKNOWN INDICATION
     Dosage: 50 MILLIGRAM, QD
     Route: 065
  6. FLUCLOXACILLIN [Suspect]
     Active Substance: FLUCLOXACILLIN
     Indication: POSTOPERATIVE WOUND INFECTION
     Dosage: 500 MILLIGRAM (14 DAYS)
     Route: 048
     Dates: start: 20171208, end: 20171215
  7. TACROLIMUS. [Concomitant]
     Active Substance: TACROLIMUS
     Indication: IMMUNOSUPPRESSION
     Dosage: UNK

REACTIONS (10)
  - Post procedural infection [Unknown]
  - Jaundice [Unknown]
  - Liver disorder [Unknown]
  - Normal newborn [Recovered/Resolved]
  - Hepatic failure [Recovered/Resolved with Sequelae]
  - Maternal exposure during pregnancy [Recovered/Resolved]
  - Nausea [Not Recovered/Not Resolved]
  - Vomiting [Not Recovered/Not Resolved]
  - Polyhydramnios [Unknown]
  - Weight increased [Unknown]

NARRATIVE: CASE EVENT DATE: 20171228
